FAERS Safety Report 10507395 (Version 5)
Quarter: 2015Q1

REPORT INFORMATION
  Report Type: Report from Study
  Country: JP (occurrence: JP)
  Receive Date: 20141009
  Receipt Date: 20150325
  Transmission Date: 20150720
  Serious: Yes (Hospitalization)
  Sender: FDA-Public Use
  Company Number: JP-ASTELLAS-BJ201308461

PATIENT
  Age: 74 Year
  Sex: Female
  Weight: 51 kg

DRUGS (30)
  1. GASMOTIN [Concomitant]
     Active Substance: MOSAPRIDE CITRATE
     Indication: PRODUCT USED FOR UNKNOWN INDICATION
     Route: 048
     Dates: end: 20120915
  2. DALACIN-S [Concomitant]
     Active Substance: CLINDAMYCIN\CLINDAMYCIN PHOSPHATE
     Indication: BRONCHOPNEUMONIA
     Route: 065
     Dates: start: 20120912, end: 20120912
  3. TRAMCET [Concomitant]
     Active Substance: ACETAMINOPHEN\TRAMADOL
     Indication: PRODUCT USED FOR UNKNOWN INDICATION
     Route: 048
  4. CELECOX [Concomitant]
     Active Substance: CELECOXIB
     Indication: TENOSYNOVITIS STENOSANS
     Route: 048
  5. JUVELA N [Concomitant]
     Active Substance: TOCOPHERYL NICOTINATE, D-.ALPHA.
     Indication: PRODUCT USED FOR UNKNOWN INDICATION
     Route: 048
  6. XYLOCAINE [Concomitant]
     Active Substance: LIDOCAINE HYDROCHLORIDE
     Indication: ANALGESIC THERAPY
     Route: 065
  7. MUCOSTA [Concomitant]
     Active Substance: REBAMIPIDE
     Indication: PRODUCT USED FOR UNKNOWN INDICATION
     Route: 048
     Dates: end: 20120915
  8. VITANEURIN                         /02035001/ [Concomitant]
     Indication: PRODUCT USED FOR UNKNOWN INDICATION
     Route: 048
     Dates: end: 20120915
  9. LOXONIN [Concomitant]
     Active Substance: LOXOPROFEN SODIUM
     Indication: PRODUCT USED FOR UNKNOWN INDICATION
     Dosage: QUANTUM LIBET, AS NEEDED
     Route: 065
     Dates: start: 20130920
  10. NEUROTROPIN                        /06251301/ [Concomitant]
     Indication: PRODUCT USED FOR UNKNOWN INDICATION
     Route: 048
  11. CRAVIT [Concomitant]
     Active Substance: LEVOFLOXACIN
     Indication: BRONCHOPNEUMONIA
     Route: 041
     Dates: start: 20120913, end: 20120919
  12. CERCINE [Concomitant]
     Active Substance: DIAZEPAM
     Indication: PRODUCT USED FOR UNKNOWN INDICATION
     Route: 048
  13. NEUROTROPIN                        /06251301/ [Concomitant]
     Indication: ANALGESIC THERAPY
     Dosage: 3.6 IU, AS NEEDED
     Route: 065
  14. URITOS [Concomitant]
     Active Substance: IMIDAFENACIN
     Indication: PRODUCT USED FOR UNKNOWN INDICATION
     Dosage: 0.05 MG, ONCE DAILY
     Route: 048
     Dates: end: 20121217
  15. EVISTA [Concomitant]
     Active Substance: RALOXIFENE HYDROCHLORIDE
     Indication: OSTEOPOROSIS
     Dosage: UNK, UNKNOWN FREQ.
     Route: 048
     Dates: end: 2012
  16. LOXONIN [Concomitant]
     Active Substance: LOXOPROFEN SODIUM
     Indication: PRODUCT USED FOR UNKNOWN INDICATION
     Dosage: QUANTUM LIBET, AS NEEDED
     Route: 065
     Dates: start: 20130920, end: 20131017
  17. METHYCOBAL [Concomitant]
     Active Substance: METHYLCOBALAMIN
     Indication: PRODUCT USED FOR UNKNOWN INDICATION
     Route: 048
  18. VOLTAREN [Concomitant]
     Active Substance: DICLOFENAC SODIUM
     Indication: PRODUCT USED FOR UNKNOWN INDICATION
     Route: 054
     Dates: end: 20121130
  19. KENACORT-A                         /00031902/ [Concomitant]
     Indication: TENOSYNOVITIS STENOSANS
     Dosage: 0.15 DF, AS NEEDED
     Route: 053
  20. BETANIS [Concomitant]
     Active Substance: MIRABEGRON
     Indication: URINARY INCONTINENCE
     Route: 048
     Dates: start: 20121218, end: 20131209
  21. BETANIS [Concomitant]
     Active Substance: MIRABEGRON
     Route: 048
     Dates: start: 20140128
  22. VESICARE [Suspect]
     Active Substance: SOLIFENACIN SUCCINATE
     Indication: URINARY INCONTINENCE
     Route: 048
     Dates: start: 20131210, end: 20140127
  23. XYLOCAINE [Concomitant]
     Active Substance: LIDOCAINE HYDROCHLORIDE
     Indication: TENOSYNOVITIS STENOSANS
     Dosage: 0.5 ML, AS NEEDED
     Route: 053
  24. CRAVIT [Concomitant]
     Active Substance: LEVOFLOXACIN
     Indication: BRONCHOPNEUMONIA
     Route: 048
     Dates: start: 20120920, end: 20120924
  25. ROCEPHIN [Concomitant]
     Active Substance: CEFTRIAXONE SODIUM
     Indication: BRONCHOPNEUMONIA
     Route: 065
     Dates: start: 20120910, end: 20120911
  26. OPALMON [Concomitant]
     Active Substance: LIMAPROST
     Indication: PRODUCT USED FOR UNKNOWN INDICATION
     Route: 048
  27. MINODRONIC ACID [Suspect]
     Active Substance: MINODRONIC ACID
     Indication: OSTEOPOROSIS
     Route: 048
     Dates: start: 20120825
  28. LOXONIN [Concomitant]
     Active Substance: LOXOPROFEN SODIUM
     Indication: PRODUCT USED FOR UNKNOWN INDICATION
     Dosage: QUANTUM LIBET, AS NEEDED
     Route: 061
  29. EFFORTIL [Concomitant]
     Active Substance: ETILEFRINE HYDROCHLORIDE
     Indication: PRODUCT USED FOR UNKNOWN INDICATION
     Route: 048
  30. ZITHROMAC [Concomitant]
     Active Substance: AZITHROMYCIN DIHYDRATE
     Indication: BRONCHOPNEUMONIA
     Route: 048
     Dates: start: 20120910, end: 20120912

REACTIONS (3)
  - Bronchopneumonia [Recovered/Resolved]
  - Thirst [Recovered/Resolved]
  - Intentional product misuse [Unknown]

NARRATIVE: CASE EVENT DATE: 20120909
